FAERS Safety Report 8610759-5 (Version None)
Quarter: 2012Q3

REPORT INFORMATION
  Report Type: 
  Country: None (occurrence: None)
  Receive Date: 20120822
  Receipt Date: 20120816
  Transmission Date: 20120928
  Serious: Yes (Other)
  Sender: FDA-Public Use
  Company Number: JP-JNJFOC-20120300677

PATIENT
  Sex: Female
  Weight: 33 kg

DRUGS (14)
  1. FULMETA [Concomitant]
     Route: 061
  2. HEPARINOID [Concomitant]
     Indication: PSORIASIS
     Route: 061
  3. STELARA [Suspect]
     Route: 058
     Dates: start: 20110906
  4. OLOPATADINE HCL [Concomitant]
     Indication: PSORIASIS
     Route: 048
  5. STELARA [Suspect]
     Indication: PSORIASIS
     Route: 058
     Dates: start: 20120808
  6. STELARA [Suspect]
     Route: 058
     Dates: start: 20120313
  7. HYDROCORTISONE BUTYRATE [Concomitant]
     Indication: PSORIASIS
     Route: 061
  8. STELARA [Suspect]
     Route: 058
     Dates: start: 20110805
  9. STELARA [Suspect]
     Route: 058
     Dates: start: 20111129
  10. HEPARINOID [Concomitant]
     Route: 061
  11. FULMETA [Concomitant]
     Indication: PSORIASIS
     Route: 061
  12. CINAL [Concomitant]
     Route: 048
  13. STELARA [Suspect]
     Route: 058
     Dates: start: 20120516
  14. OXAROL [Concomitant]
     Indication: PSORIASIS
     Route: 061

REACTIONS (1)
  - IRON DEFICIENCY ANAEMIA [None]
